FAERS Safety Report 5940927-2 (Version None)
Quarter: 2008Q4

REPORT INFORMATION
  Report Type: 
  Country: None (occurrence: None)
  Receive Date: 20081031
  Receipt Date: 20081017
  Transmission Date: 20090506
  Serious: Yes (Hospitalization)
  Sender: FDA-Public Use
  Company Number: 2008S1018871

PATIENT
  Age: 46 Year
  Sex: Female

DRUGS (3)
  1. METHOTREXATE [Suspect]
     Indication: RHEUMATOID ARTHRITIS
     Dosage: 15 MG; DAILY; SUBCUTANEOUS
     Route: 058
     Dates: start: 20011101
  2. PREDNISONE [Suspect]
     Indication: RHEUMATOID ARTHRITIS
     Dosage: 5 MG; DAILY; SUBCUTANEOUS
     Route: 058
     Dates: start: 20000901
  3. ENBREL [Suspect]
     Indication: RHEUMATOID ARTHRITIS
     Dosage: 50 MG; DAILY; SUBCUTANEOUS
     Route: 058
     Dates: start: 20070901

REACTIONS (1)
  - ABSCESS [None]
